FAERS Safety Report 25598821 (Version 3)
Quarter: 2025Q3

REPORT INFORMATION
  Report Type: Spontaneous
  Country: EU (occurrence: EU)
  Receive Date: 20250724
  Receipt Date: 20250813
  Transmission Date: 20251021
  Serious: Yes (Other)
  Sender: ALKEM
  Company Number: EU-ALKEM LABORATORIES LIMITED-DE-ALKEM-2025-07432

PATIENT
  Age: 14 Year

DRUGS (9)
  1. LACOSAMIDE [Interacting]
     Active Substance: LACOSAMIDE
     Indication: Partial seizures
     Dosage: 100 MILLIGRAM, BID (3.74 MILLIGRAM/KILOGRAM/DAY)
     Route: 065
  2. LACOSAMIDE [Interacting]
     Active Substance: LACOSAMIDE
     Indication: Seizure prophylaxis
     Dosage: 150 MILLIGRAM, QD (4.68 MILLIGRAM/KILOGRAM/DAY)
     Route: 065
  3. LACOSAMIDE [Interacting]
     Active Substance: LACOSAMIDE
     Dosage: 150 MILLIGRAM, BID
     Route: 065
  4. LEVETIRACETAM [Interacting]
     Active Substance: LEVETIRACETAM
     Indication: Partial seizures
     Dosage: 1000 MILLIGRAM, BID (APPROXIMATELY 37.4 MILLIGRAM/KILOGRAM/DAY)
     Route: 065
  5. LEVETIRACETAM [Interacting]
     Active Substance: LEVETIRACETAM
     Indication: Seizure prophylaxis
     Route: 065
  6. LEVETIRACETAM [Interacting]
     Active Substance: LEVETIRACETAM
     Route: 065
  7. VALPROATE [Interacting]
     Active Substance: VALPROIC ACID
     Indication: Partial seizures
     Dosage: 500 MILLIGRAM, BID (APPROXIMATELY 18.33 MG/KG/D)
     Route: 065
  8. VALPROATE [Interacting]
     Active Substance: VALPROIC ACID
     Indication: Seizure prophylaxis
     Dosage: 750 MILLIGRAM, BID (APPROXIMATELY 28.09 MG/KG/D)
     Route: 065
  9. VALPROATE [Interacting]
     Active Substance: VALPROIC ACID
     Route: 065

REACTIONS (2)
  - Anticonvulsant drug level decreased [Recovered/Resolved]
  - Drug interaction [Unknown]
